FAERS Safety Report 9664823 (Version 1)
Quarter: 2013Q4

REPORT INFORMATION
  Report Type: Spontaneous
  Country: GB (occurrence: None)
  Receive Date: 20131031
  Receipt Date: 20131031
  Transmission Date: 20140711
  Serious: Yes (Other)
  Sender: FDA-Public Use
  Company Number: AUR-APL-2013-05847

PATIENT
  Age: 90 Year
  Sex: Female

DRUGS (4)
  1. CIPROFLOXACIN (CIPROFLOXACIN) [Suspect]
     Indication: NOSOCOMIAL INFECTION
     Dosage: 1500 MG 500 MG 3 IN 1 D
     Route: 048
     Dates: start: 20110505, end: 20110508
  2. CIPROFLOXACIN (CIPROFLOXACIN) [Suspect]
     Indication: NOSOCOMIAL INFECTION
     Dosage: 400 MG BID
     Route: 048
     Dates: start: 20110509, end: 20110511
  3. CO-AMOXICLAV [Suspect]
     Indication: NOSOCOMIAL INFECTION
     Dosage: 1.2 GM 3 IN 1 D
     Route: 048
     Dates: start: 20110504, end: 20110504
  4. OMEPRAZOLE (OMEPRAZOLE) [Concomitant]

REACTIONS (6)
  - Clostridium difficile colitis [None]
  - Vomiting [None]
  - Pyrexia [None]
  - Abdominal distension [None]
  - Malaise [None]
  - Gastroenteritis norovirus [None]
